FAERS Safety Report 5104300-1 (Version None)
Quarter: 2006Q3

REPORT INFORMATION
  Report Type: 
  Country: None (occurrence: None)
  Receive Date: 20060731
  Receipt Date: 20060523
  Transmission Date: 20061208
  Serious: No
  Sender: FDA-Public Use
  Company Number: 2006PV014469

PATIENT
  Age: 51 Year
  Sex: Male

DRUGS (5)
  1. BYETTA [Suspect]
     Indication: DIABETES MELLITUS NON-INSULIN-DEPENDENT
     Dosage: 10 MCG;BID;SC
     Route: 058
     Dates: start: 20060519
  2. LANTUS [Concomitant]
  3. AVANDIA [Concomitant]
  4. METFORMIN HCL [Concomitant]
  5. AVANDAMET [Concomitant]

REACTIONS (6)
  - BLOOD GLUCOSE DECREASED [None]
  - DECREASED APPETITE [None]
  - DYSPEPSIA [None]
  - HYPOAESTHESIA ORAL [None]
  - PARAESTHESIA ORAL [None]
  - VOMITING [None]
